FAERS Safety Report 15367014 (Version 2)
Quarter: 2018Q3

REPORT INFORMATION
  Report Type: Spontaneous
  Country: FI (occurrence: FI)
  Receive Date: 20180910
  Receipt Date: 20180920
  Transmission Date: 20181010
  Serious: Yes (Other)
  Sender: FDA-Public Use
  Company Number: FI-PFIZER INC-2018355391

PATIENT
  Age: 50 Year
  Sex: Female

DRUGS (4)
  1. TRADOLAN [Concomitant]
     Active Substance: TRAMADOL
  2. XELJANZ [Suspect]
     Active Substance: TOFACITINIB CITRATE
     Indication: RHEUMATOID ARTHRITIS
     Dosage: UNK
     Dates: start: 20180507, end: 20180816
  3. MELOXICAM. [Concomitant]
     Active Substance: MELOXICAM
  4. RELVAR [Concomitant]
     Active Substance: FLUTICASONE FUROATE\VILANTEROL TRIFENATATE

REACTIONS (5)
  - Infection susceptibility increased [Unknown]
  - Synovitis [Unknown]
  - Gastric disorder [Unknown]
  - Genital abscess [Unknown]
  - Nausea [Unknown]
